FAERS Safety Report 13762490 (Version 1)
Quarter: 2017Q3

REPORT INFORMATION
  Report Type: Spontaneous
  Country: US (occurrence: US)
  Receive Date: 20170718
  Receipt Date: 20170718
  Transmission Date: 20171127
  Serious: No
  Sender: FDA-Public Use
  Company Number: US-PFIZER INC-2017308286

PATIENT
  Age: 65 Year
  Sex: Female
  Weight: 52.16 kg

DRUGS (4)
  1. IBRANCE [Suspect]
     Active Substance: PALBOCICLIB
     Indication: BREAST CANCER STAGE IV
     Dosage: 125 MG, CYCLIC
     Route: 048
     Dates: start: 201705
  2. IBRANCE [Suspect]
     Active Substance: PALBOCICLIB
     Dosage: 100 MG, CYCLIC (100MG PINK CAPSULE ONCE A DAY, 3 WEEKS ON, 1 WEEK OFF)
     Route: 048
     Dates: end: 20170710
  3. FASLODEX [Suspect]
     Active Substance: FULVESTRANT
     Indication: BREAST CANCER STAGE IV
     Dosage: UNK UNK, MONTHLY (2 SHOTS, ONE IN EACH CHEEK, INJECTION ONCE A MONTH)
  4. FASLODEX [Suspect]
     Active Substance: FULVESTRANT
     Dosage: UNK UNK, MONTHLY (2 SHOTS, ONE IN EACH CHEEK, INJECTION ONCE A MONTH)
     Dates: start: 201705

REACTIONS (9)
  - Abdominal pain upper [Unknown]
  - Malaise [Unknown]
  - Hyperchlorhydria [Unknown]
  - Chills [Recovered/Resolved]
  - Feeding disorder [Unknown]
  - White blood cell count decreased [Recovered/Resolved]
  - Cough [Recovering/Resolving]
  - Dyspnoea [Recovering/Resolving]
  - Pyrexia [Recovered/Resolved]

NARRATIVE: CASE EVENT DATE: 201705
